FAERS Safety Report 6630887-3 (Version None)
Quarter: 2010Q1

REPORT INFORMATION
  Report Type: 
  Country: None (occurrence: None)
  Receive Date: 20100311
  Receipt Date: 20100302
  Transmission Date: 20100710
  Serious: Yes (Life-Threatening, Hospitalization)
  Sender: FDA-Public Use
  Company Number: US-ROCHE-564352

PATIENT
  Sex: Female
  Weight: 90.4 kg

DRUGS (17)
  1. TOCILIZUMAB [Suspect]
     Indication: RHEUMATOID ARTHRITIS
     Route: 042
     Dates: start: 20060911
  2. TOCILIZUMAB [Suspect]
     Route: 042
     Dates: start: 20080128
  3. TOCILIZUMAB [Suspect]
     Route: 042
     Dates: start: 20080221
  4. TOCILIZUMAB [Suspect]
     Route: 042
     Dates: start: 20080324
  5. TOCILIZUMAB [Suspect]
     Dosage: PERMANENTLY DISCONTINUED ON 13 MAY 2008.
     Route: 042
     Dates: start: 20080421, end: 20080513
  6. TOCILIZUMAB [Suspect]
     Dosage: PREVIOUSLY ENROLLED WITH WA18063 STUDY.
     Route: 042
  7. METHOTREXATE [Concomitant]
     Dosage: DOSE: 7.5 TDD: 17 MG/WK
     Route: 048
  8. FOLIC ACID [Concomitant]
     Dosage: TDD NOT LEGIBLE
  9. CALCIUM [Concomitant]
     Dosage: DRUG: CA++
  10. CELEBREX [Concomitant]
  11. PLAQUENIL [Concomitant]
  12. DARVOCET-N 100 [Concomitant]
     Dosage: TDD: 4 QD
  13. TOPAMAX [Concomitant]
     Dosage: TDD: 300
  14. WELLBUTRIN [Concomitant]
  15. VALIUM [Concomitant]
     Dosage: TDD: 10 MG 2-3XQD
  16. VICODIN [Concomitant]
     Dosage: TDD: 5/325 PRN
  17. PROGESTERONE [Concomitant]
     Dosage: DRUG: PROGESTERONE 3 % VAGINAL CREAM TDD:QHS
     Dates: start: 20080716

REACTIONS (1)
  - ENDOMETRIAL CANCER STAGE II [None]
